FAERS Safety Report 19873400 (Version 2)
Quarter: 2021Q4

REPORT INFORMATION
  Report Type: Report from Study
  Country: TH (occurrence: TH)
  Receive Date: 20210922
  Receipt Date: 20211018
  Transmission Date: 20220303
  Serious: Yes (Hospitalization)
  Sender: FDA-Public Use
  Company Number: TH-SHIONOGI-202111296_S-649266_C_1

PATIENT
  Age: 47 Year
  Sex: Female

DRUGS (8)
  1. CEFIDEROCOL [Suspect]
     Active Substance: CEFIDEROCOL
     Indication: Bacteraemia
     Dosage: 2 GRAMS EVERY 8 HOURS
     Route: 042
     Dates: start: 20210910, end: 20210912
  2. PIPERACILLIN SODIUM\TAZOBACTAM SODIUM [Concomitant]
     Active Substance: PIPERACILLIN SODIUM\TAZOBACTAM SODIUM
     Dosage: UNKNOWN
     Route: 065
     Dates: start: 20210908, end: 20210909
  3. MEROPENEM [Concomitant]
     Active Substance: MEROPENEM
     Dosage: UNKNOWN
     Route: 065
     Dates: start: 20210909, end: 20210910
  4. ERLOTINIB [Concomitant]
     Active Substance: ERLOTINIB
     Indication: Lung neoplasm malignant
     Dosage: UNKNOWN
     Route: 065
     Dates: start: 20210806
  5. ERLOTINIB [Concomitant]
     Active Substance: ERLOTINIB
     Indication: Metastases to central nervous system
  6. KEPPRA [Concomitant]
     Active Substance: LEVETIRACETAM
     Indication: Seizure prophylaxis
     Dosage: (500MG) 1 TAB PO BID
     Route: 048
     Dates: start: 20210805
  7. MAGNESIUM SULFATE [Concomitant]
     Active Substance: MAGNESIUM SULFATE
     Dosage: UNKNOWN
     Route: 042
     Dates: start: 20210908, end: 20210910
  8. ACETYLCYSTEINE [Concomitant]
     Active Substance: ACETYLCYSTEINE
     Dosage: UNKNOWN
     Route: 065
     Dates: start: 20210909

REACTIONS (1)
  - Encephalopathy [Recovered/Resolved]

NARRATIVE: CASE EVENT DATE: 20210912
